FAERS Safety Report 11302660 (Version 1)
Quarter: 2015Q3

REPORT INFORMATION
  Report Type: Spontaneous
  Country: US (occurrence: None)
  Receive Date: 20150723
  Receipt Date: 20150723
  Transmission Date: 20151125
  Serious: Yes (Disabling)
  Sender: FDA-Public Use
  Company Number: None

PATIENT
  Age: 27 Year
  Sex: Male
  Weight: 83.92 kg

DRUGS (2)
  1. CYMBALTA [Suspect]
     Active Substance: DULOXETINE HYDROCHLORIDE
     Indication: ANXIETY
     Route: 048
  2. CYMBALTA [Suspect]
     Active Substance: DULOXETINE HYDROCHLORIDE
     Indication: DEPRESSION
     Route: 048

REACTIONS (25)
  - Sinus headache [None]
  - Dysgeusia [None]
  - Bruxism [None]
  - Impaired work ability [None]
  - Withdrawal syndrome [None]
  - Rhinalgia [None]
  - Dyskinesia [None]
  - Migraine [None]
  - Formication [None]
  - Hypersensitivity [None]
  - Facial pain [None]
  - Burning sensation [None]
  - Quality of life decreased [None]
  - Fatigue [None]
  - Sleep disorder [None]
  - Amnesia [None]
  - Vision blurred [None]
  - Muscle spasms [None]
  - Wrong technique in product usage process [None]
  - Photophobia [None]
  - Eye pain [None]
  - Drug ineffective [None]
  - Mental impairment [None]
  - Visual impairment [None]
  - Paraesthesia [None]

NARRATIVE: CASE EVENT DATE: 20130528
